FAERS Safety Report 17979871 (Version 2)
Quarter: 2020Q4

REPORT INFORMATION
  Report Type: Report from Study
  Country: None (occurrence: US)
  Receive Date: 20200703
  Receipt Date: 20201007
  Transmission Date: 20210113
  Serious: Yes (Other)
  Sender: FDA-Public Use
  Company Number: US-ABBVIE-20K-163-3466363-00

PATIENT
  Sex: Male

DRUGS (2)
  1. IMBRUVICA [Suspect]
     Active Substance: IBRUTINIB
     Indication: B-CELL PROLYMPHOCYTIC LEUKAEMIA
     Route: 048
  2. IMBRUVICA [Suspect]
     Active Substance: IBRUTINIB
     Route: 048
     Dates: start: 202003

REACTIONS (6)
  - Weight increased [Recovering/Resolving]
  - Muscle spasms [Unknown]
  - Drug dependence [Unknown]
  - Fatigue [Unknown]
  - Depression [Unknown]
  - Asthenia [Unknown]

NARRATIVE: CASE EVENT DATE: 2020
